FAERS Safety Report 16462321 (Version 1)
Quarter: 2019Q2

REPORT INFORMATION
  Report Type: Report from Study
  Country: US (occurrence: US)
  Receive Date: 20190621
  Receipt Date: 20190621
  Transmission Date: 20190711
  Serious: Yes (Other)
  Sender: FDA-Public Use
  Company Number: US-TEVA-2019-US-1063556

PATIENT
  Sex: Female

DRUGS (1)
  1. COPAXONE [Suspect]
     Active Substance: GLATIRAMER ACETATE

REACTIONS (12)
  - Flushing [Unknown]
  - Muscle spasms [Unknown]
  - Hemiparesis [Not Recovered/Not Resolved]
  - Chest discomfort [Unknown]
  - Chills [Unknown]
  - Injection site mass [Unknown]
  - Muscular weakness [Not Recovered/Not Resolved]
  - Head discomfort [Unknown]
  - Muscle spasms [Not Recovered/Not Resolved]
  - Injection site pruritus [Unknown]
  - Peroneal nerve palsy [Unknown]
  - Throat tightness [Unknown]
